FAERS Safety Report 15947180 (Version 1)
Quarter: 2019Q1

REPORT INFORMATION
  Report Type: Spontaneous
  Country: US (occurrence: US)
  Receive Date: 20190211
  Receipt Date: 20190211
  Transmission Date: 20190417
  Serious: No
  Sender: FDA-Public Use
  Company Number: US-PFIZER INC-2019050603

PATIENT
  Age: 61 Year
  Sex: Female
  Weight: 81.65 kg

DRUGS (1)
  1. GABAPENTIN. [Suspect]
     Active Substance: GABAPENTIN
     Indication: NERVE INJURY
     Dosage: 100 MG, 3X/DAY

REACTIONS (11)
  - Cardiac disorder [Unknown]
  - Blood pressure increased [Unknown]
  - Palpitations [Unknown]
  - Gait disturbance [Unknown]
  - Dyspnoea [Unknown]
  - Product use in unapproved indication [Unknown]
  - Heart rate increased [Unknown]
  - Intentional product use issue [Unknown]
  - Wheezing [Unknown]
  - Gastric disorder [Unknown]
  - Swelling [Unknown]
